FAERS Safety Report 5422654-3 (Version None)
Quarter: 2007Q3

REPORT INFORMATION
  Report Type: 
  Country: None (occurrence: None)
  Receive Date: 20070730
  Receipt Date: 20070515
  Transmission Date: 20080115
  Serious: Yes (Other)
  Sender: FDA-Public Use
  Company Number: 200710720BWH

PATIENT
  Age: 59 Year
  Sex: Male
  Weight: 99.7913 kg

DRUGS (1)
  1. AVELOX [Suspect]
     Indication: BRONCHITIS
     Dosage: 400 MG, ONCE, ORAL
     Route: 048
     Dates: start: 20070228

REACTIONS (6)
  - EYE SWELLING [None]
  - HYPERSENSITIVITY [None]
  - HYPOAESTHESIA [None]
  - HYPOAESTHESIA ORAL [None]
  - LACRIMATION INCREASED [None]
  - SWELLING FACE [None]
